FAERS Safety Report 23062230 (Version 1)
Quarter: 2023Q4

REPORT INFORMATION
  Report Type: Spontaneous
  Country: US (occurrence: US)
  Receive Date: 20231013
  Receipt Date: 20231013
  Transmission Date: 20240109
  Serious: Yes (Death, Hospitalization, Other)
  Sender: FDA-Public Use
  Company Number: US-AMGEN-USASP2023180960

PATIENT
  Age: 75 Year
  Sex: Female

DRUGS (1)
  1. FILGRASTIM [Suspect]
     Active Substance: FILGRASTIM
     Indication: Neutropenia
     Dosage: UNK, GIVEN FOR THREE DAYS
     Route: 065

REACTIONS (4)
  - Death [Fatal]
  - Peripheral T-cell lymphoma unspecified [Unknown]
  - Mental status changes [Recovered/Resolved]
  - White blood cell count increased [Unknown]
